FAERS Safety Report 6599916-X (Version None)
Quarter: 2010Q1

REPORT INFORMATION
  Report Type: 
  Country: None (occurrence: None)
  Receive Date: 20100217
  Receipt Date: 20100129
  Transmission Date: 20100710
  Serious: Yes (Death, Hospitalization)
  Sender: FDA-Public Use
  Company Number: 1000010897

PATIENT
  Age: 83 Year
  Sex: Male
  Weight: 69 kg

DRUGS (20)
  1. MEMANTINE HCL [Suspect]
     Indication: DEMENTIA ALZHEIMER'S TYPE
     Dosage: 10 MG (10 MG, 1 IN 1 D), ORAL
     Route: 048
     Dates: start: 20091209, end: 20091215
  2. MEMANTINE HCL [Suspect]
     Indication: DEMENTIA ALZHEIMER'S TYPE
     Dosage: 5 MG (5 MG, 1 IN 1 D), ORAL
     Route: 048
     Dates: start: 20091204, end: 20091208
  3. NORSET            (MIRTAZAPINE) [Suspect]
     Dosage: 15 MG (15 MG, 1 IN 1 D)
     Dates: start: 20091119, end: 20091215
  4. CARDENSIEL (1.25) [Concomitant]
  5. COLCHICINE (1 MILLIGRAM) [Concomitant]
  6. CONTRAMAL (50 MILLIGRAM) [Concomitant]
  7. DISCOTRINE (5 MILLIGRAM, POULTICE OR PATCH) [Concomitant]
  8. EQUANIL (400) [Concomitant]
  9. EFFERALGAN [Concomitant]
  10. HYDREA (500 MILLIGRAM) [Concomitant]
  11. IKOREL (10) [Concomitant]
  12. INEXIUM (20) [Concomitant]
  13. ESIDREX (25) [Concomitant]
  14. KENZEN (8) [Concomitant]
  15. MINISINTROM [Concomitant]
  16. PLAVIX [Concomitant]
  17. RISPERDAL (0.1 PERCENT) [Concomitant]
  18. SEROPLEX (TABLETS) [Concomitant]
  19. SOLUPRED [Concomitant]
  20. SPECIAFOLDINE (5 MILLIGRAM) [Concomitant]

REACTIONS (8)
  - ACUTE PULMONARY OEDEMA [None]
  - AGITATION [None]
  - BUNDLE BRANCH BLOCK LEFT [None]
  - BUNDLE BRANCH BLOCK RIGHT [None]
  - ELECTROCARDIOGRAM QT PROLONGED [None]
  - SINUS ARRHYTHMIA [None]
  - SUPRAVENTRICULAR EXTRASYSTOLES [None]
  - VENTRICULAR EXTRASYSTOLES [None]
